FAERS Safety Report 4552753-X (Version None)
Quarter: 2005Q1

REPORT INFORMATION
  Report Type: 
  Country: None (occurrence: None)
  Receive Date: 20050113
  Receipt Date: 20050113
  Transmission Date: 20050727
  Serious: Yes (Life-Threatening, Hospitalization)
  Sender: FDA-Public Use
  Company Number: None

PATIENT
  Age: 17 Year
  Sex: Male
  Weight: 78.9259 kg

DRUGS (4)
  1. BACLOFEN [Suspect]
     Indication: DEPRESSION
     Dosage: 400 MCG   DAILY   INTRATHECA
     Route: 037
     Dates: start: 20030523, end: 20041129
  2. BACLOFEN [Suspect]
     Indication: ERECTILE DYSFUNCTION
     Dosage: 400 MCG   DAILY   INTRATHECA
     Route: 037
     Dates: start: 20030523, end: 20041129
  3. BACLOFEN [Suspect]
     Indication: PRURITUS
     Dosage: 400 MCG   DAILY   INTRATHECA
     Route: 037
     Dates: start: 20030523, end: 20041129
  4. BACLOFEN [Suspect]
     Indication: SOCIAL AVOIDANT BEHAVIOUR
     Dosage: 400 MCG   DAILY   INTRATHECA
     Route: 037
     Dates: start: 20030523, end: 20041129

REACTIONS (4)
  - CATHETER RELATED COMPLICATION [None]
  - DEVICE FAILURE [None]
  - DRUG WITHDRAWAL SYNDROME [None]
  - SURGERY [None]
